FAERS Safety Report 5545478-5 (Version None)
Quarter: 2007Q4

REPORT INFORMATION
  Report Type: 
  Country: None (occurrence: None)
  Receive Date: 20071211
  Receipt Date: 20071205
  Transmission Date: 20080405
  Serious: Yes (Other)
  Sender: FDA-Public Use
  Company Number: GB-AVENTIS-200721153GDDC

PATIENT

DRUGS (3)
  1. GLIBENCLAMIDE [Suspect]
     Route: 048
  2. METFORMIN HCL [Suspect]
     Route: 048
  3. SULFONAMIDES, UREA DERIVATIVES [Suspect]
     Route: 048

REACTIONS (5)
  - CARDIAC FAILURE CONGESTIVE [None]
  - CHRONIC OBSTRUCTIVE PULMONARY DISEASE [None]
  - CORONARY ARTERY DISEASE [None]
  - LIVER DISORDER [None]
  - RENAL IMPAIRMENT [None]
